FAERS Safety Report 5207959-3 (Version None)
Quarter: 2007Q1

REPORT INFORMATION
  Report Type: 
  Country: None (occurrence: None)
  Receive Date: 20070115
  Receipt Date: 20070104
  Transmission Date: 20070707
  Serious: No
  Sender: FDA-Public Use
  Company Number: US-ELI_LILLY_AND_COMPANY-US200612003683

PATIENT
  Age: 55 Year
  Sex: Female

DRUGS (18)
  1. ZYPREXA [Suspect]
     Indication: BIPOLAR DISORDER
     Dosage: 5 MG, EACH EVENING
     Dates: start: 20061116
  2. ZYPREXA [Suspect]
     Dosage: 10 MG, UNK
  3. FERROUS SULFATE TAB [Concomitant]
     Dosage: 325 MG, DAILY (1/D)
     Dates: start: 20061129
  4. FOLIC ACID [Concomitant]
     Dosage: 1 MG, DAILY (1/D)
     Dates: start: 20061129
  5. MAGNESIUM OXIDE [Concomitant]
     Dosage: 400 MG, UNK
     Dates: start: 20061129
  6. MULTI-VITAMIN [Concomitant]
     Dosage: 1 UNK, DAILY (1/D)
     Dates: start: 20061129
  7. OMEPRAZOLE [Concomitant]
     Dosage: 20 MEQ, EACH MORNING
     Dates: start: 20061129
  8. OXYCODONE HCL [Concomitant]
     Indication: PAIN
     Dosage: 5 MG, 2/D
     Dates: start: 20061129
  9. OXYCODONE HCL [Concomitant]
     Dosage: 5 MG, AS NEEDED
     Dates: start: 20061129
  10. PAXIL [Concomitant]
     Dosage: 10 MG, DAILY (1/D)
     Dates: start: 20061117
  11. SIMETHICONE [Concomitant]
     Indication: FLATULENCE
     Dosage: 80 MG, AS NEEDED
     Dates: start: 20061129
  12. THIAMINE ^SAD^ [Concomitant]
     Dosage: 200 MG, 2/D
     Dates: start: 20061129
  13. TRILISATE [Concomitant]
     Dosage: 1 G, 2/D
     Dates: start: 20061129
  14. ASCORBIC ACID [Concomitant]
     Indication: ANAEMIA
     Dosage: 500 MG, DAILY (1/D)
     Dates: start: 20061129
  15. CYTOMEL [Concomitant]
     Dates: start: 20061115
  16. LIBRIUM [Concomitant]
     Dates: start: 20061112
  17. RESTORIL [Concomitant]
     Dates: start: 20061112
  18. NEURONTIN [Concomitant]
     Dates: start: 20061112

REACTIONS (6)
  - AFFECT LABILITY [None]
  - BALANCE DISORDER [None]
  - DISTURBANCE IN ATTENTION [None]
  - EPISTAXIS [None]
  - FALL [None]
  - TEARFULNESS [None]
